FAERS Safety Report 7732846-6 (Version None)
Quarter: 2011Q3

REPORT INFORMATION
  Report Type: 
  Country: None (occurrence: None)
  Receive Date: 20110907
  Receipt Date: 20110902
  Transmission Date: 20111222
  Serious: Yes (Hospitalization)
  Sender: FDA-Public Use
  Company Number: IT-AMGEN-ITASP2011045309

PATIENT
  Age: 67 Year
  Sex: Male

DRUGS (7)
  1. MYCAMINE [Suspect]
     Indication: ANTIFUNGAL PROPHYLAXIS
     Dosage: 50 MG, UNK
     Route: 042
     Dates: start: 20110713, end: 20110804
  2. PIPERACILLIN AND TAZOBACTAM [Suspect]
     Indication: ANTIBIOTIC PROPHYLAXIS
     Dosage: 12 G, UNK
     Route: 042
     Dates: start: 20110713, end: 20110805
  3. NEULASTA [Suspect]
     Indication: CHEMOTHERAPY
     Dosage: 350 MUG, UNK
     Route: 058
     Dates: start: 20110728, end: 20110802
  4. ANTINEOPLASTIC AGENTS [Concomitant]
  5. MERREM [Suspect]
     Indication: ANTIBIOTIC PROPHYLAXIS
     Dosage: 3 G, UNK
     Route: 042
     Dates: start: 20110731, end: 20110802
  6. LEVOFLOXACIN [Suspect]
     Indication: ANTIBIOTIC PROPHYLAXIS
     Dosage: 750 MG, UNK
     Route: 042
     Dates: start: 20110721, end: 20110805
  7. VANCOMICINA HOSPIRA [Suspect]
     Indication: ANTIBIOTIC PROPHYLAXIS
     Dosage: 2 G, UNK
     Route: 042
     Dates: start: 20110725, end: 20110804

REACTIONS (1)
  - RASH GENERALISED [None]
